FAERS Safety Report 6233305-2 (Version None)
Quarter: 2009Q2

REPORT INFORMATION
  Report Type: 
  Country: None (occurrence: None)
  Receive Date: 20090615
  Receipt Date: 20090615
  Transmission Date: 20091009
  Serious: Yes (Hospitalization, Disabling, Other)
  Sender: FDA-Public Use
  Company Number: None

PATIENT
  Age: 20 Year
  Sex: Male
  Weight: 71.8 kg

DRUGS (5)
  1. MEFLOQUINE HYDROCHLORIDE [Suspect]
     Indication: MALARIA
     Dosage: 023/047
     Dates: start: 19740401, end: 19741201
  2. LARIAM [Suspect]
  3. NAVANE [Concomitant]
  4. PROLIXIN [Concomitant]
  5. PAXIL [Concomitant]

REACTIONS (15)
  - AGGRESSION [None]
  - AGITATION [None]
  - ALCOHOL USE [None]
  - ANXIETY [None]
  - DEPRESSION [None]
  - EAR PAIN [None]
  - MEMORY IMPAIRMENT [None]
  - MOOD ALTERED [None]
  - NIGHTMARE [None]
  - PANIC ATTACK [None]
  - PARANOIA [None]
  - PSYCHOTIC BEHAVIOUR [None]
  - SINUS ARRHYTHMIA [None]
  - SUPRAVENTRICULAR EXTRASYSTOLES [None]
  - TINNITUS [None]
